FAERS Safety Report 4487819-6 (Version None)
Quarter: 2004Q4

REPORT INFORMATION
  Report Type: 
  Country: None (occurrence: None)
  Receive Date: 20041027
  Receipt Date: 20041027
  Transmission Date: 20050328
  Serious: Yes (Hospitalization)
  Sender: FDA-Public Use
  Company Number: None

PATIENT
  Age: 65 Year
  Sex: Female
  Weight: 90.2658 kg

DRUGS (1)
  1. ERBITUX 200 MG IMCLONE [Suspect]
     Indication: COLON CANCER METASTATIC
     Dosage: 200 MG IV PER PORTA CATH
     Route: 042
     Dates: start: 20041026

REACTIONS (10)
  - BLOOD PRESSURE DECREASED [None]
  - BLOOD PRESSURE SYSTOLIC INCREASED [None]
  - CHEST PAIN [None]
  - ERYTHEMA [None]
  - HEART RATE DECREASED [None]
  - INFUSION RELATED REACTION [None]
  - NAUSEA [None]
  - OXYGEN SATURATION DECREASED [None]
  - PALLOR [None]
  - PRURITUS [None]
